FAERS Safety Report 7394864-X (Version None)
Quarter: 2011Q2

REPORT INFORMATION
  Report Type: 
  Country: None (occurrence: None)
  Receive Date: 20110405
  Receipt Date: 20110329
  Transmission Date: 20111010
  Serious: Yes (Other)
  Sender: FDA-Public Use
  Company Number: A0920454A

PATIENT
  Sex: Female

DRUGS (3)
  1. TEKTURNA [Concomitant]
  2. TYKERB [Suspect]
     Indication: BREAST CANCER
     Dosage: 5TAB PER DAY
     Route: 048
     Dates: start: 20100501, end: 20110301
  3. LIPITOR [Concomitant]

REACTIONS (3)
  - ERYTHEMA [None]
  - MUSCULOSKELETAL STIFFNESS [None]
  - HEPATIC ENZYME INCREASED [None]
